FAERS Safety Report 13961434 (Version 2)
Quarter: 2017Q4

REPORT INFORMATION
  Report Type: Report from Study
  Country: US (occurrence: US)
  Receive Date: 20170912
  Receipt Date: 20171009
  Transmission Date: 20180320
  Serious: No
  Sender: FDA-Public Use
  Company Number: PHEH2017US028716

PATIENT
  Age: 74 Year
  Sex: Female
  Weight: 92.7 kg

DRUGS (4)
  1. NEURONTIN [Concomitant]
     Active Substance: GABAPENTIN
     Indication: SPINAL COLUMN STENOSIS
     Route: 065
  2. COSENTYX [Suspect]
     Active Substance: SECUKINUMAB
     Dosage: 150 MG, UNK
     Route: 058
  3. COSENTYX [Suspect]
     Active Substance: SECUKINUMAB
     Indication: PSORIATIC ARTHROPATHY
     Dosage: 150 MG, QW AT WEEKS 0, 1, 2, 3, 4
     Route: 058
     Dates: start: 20170719, end: 20170804
  4. METHOTREXATE. [Concomitant]
     Active Substance: METHOTREXATE
     Indication: PRODUCT USED FOR UNKNOWN INDICATION
     Route: 065

REACTIONS (10)
  - Glossodynia [Recovering/Resolving]
  - Lip swelling [Recovered/Resolved]
  - Swelling [Recovered/Resolved]
  - Pruritus [Recovered/Resolved]
  - Hypersensitivity [Recovering/Resolving]
  - Tongue erythema [Recovering/Resolving]
  - Swelling face [Recovering/Resolving]
  - Eye pruritus [Recovered/Resolved]
  - Nasal discomfort [Recovering/Resolving]
  - Eye swelling [Recovered/Resolved]

NARRATIVE: CASE EVENT DATE: 20170802
